FAERS Safety Report 7817137-7 (Version None)
Quarter: 2011Q4

REPORT INFORMATION
  Report Type: 
  Country: None (occurrence: None)
  Receive Date: 20111017
  Receipt Date: 20111017
  Transmission Date: 20120403
  Serious: Yes (Hospitalization)
  Sender: FDA-Public Use
  Company Number: None

PATIENT
  Sex: Male
  Weight: 18 kg

DRUGS (2)
  1. PRIVIGEN [Suspect]
     Indication: DERMATOMYOSITIS
     Dosage: 18 GRAMS DAILY
     Route: 042
     Dates: start: 20110920, end: 20110921
  2. PRIVIGEN [Concomitant]

REACTIONS (3)
  - DEVICE RELATED INFECTION [None]
  - MENINGITIS ASEPTIC [None]
  - STAPHYLOCOCCUS TEST POSITIVE [None]
